FAERS Safety Report 18807129 (Version 2)
Quarter: 2021Q1

REPORT INFORMATION
  Report Type: Spontaneous
  Country: GB (occurrence: GB)
  Receive Date: 20210129
  Receipt Date: 20210315
  Transmission Date: 20210419
  Serious: Yes (Other)
  Sender: FDA-Public Use
  Company Number: GB-PFIZER INC-2021062880

PATIENT
  Age: 70 Year
  Sex: Male
  Weight: 68.03 kg

DRUGS (11)
  1. FRAGMIN [Suspect]
     Active Substance: DALTEPARIN SODIUM
     Indication: PULMONARY EMBOLISM
     Dosage: 15,000 IU
     Route: 051
     Dates: start: 20210111
  2. ATORVASTATIN [Concomitant]
     Active Substance: ATORVASTATIN
     Indication: ILL-DEFINED DISORDER
  3. LEVOTHYROXINE. [Concomitant]
     Active Substance: LEVOTHYROXINE
     Indication: ILL-DEFINED DISORDER
  4. GARLIC EXTRACT [ALLIUM SATIVUM BULB] [Concomitant]
     Indication: ILL-DEFINED DISORDER
  5. GLUCOSAMINE [Concomitant]
     Active Substance: GLUCOSAMINE
     Indication: ILL-DEFINED DISORDER
  6. DOXAZOSIN [Concomitant]
     Active Substance: DOXAZOSIN MESYLATE
     Indication: ILL-DEFINED DISORDER
  7. LOSARTAN POTASSIUM. [Concomitant]
     Active Substance: LOSARTAN POTASSIUM
     Indication: ILL-DEFINED DISORDER
  8. VITAMINS NOS [Concomitant]
     Active Substance: VITAMINS
     Indication: ILL-DEFINED DISORDER
  9. DEXAMETHASONE. [Concomitant]
     Active Substance: DEXAMETHASONE
     Indication: ILL-DEFINED DISORDER
  10. LANSOPRAZOLE. [Concomitant]
     Active Substance: LANSOPRAZOLE
     Indication: ILL-DEFINED DISORDER
  11. COD LIVER OIL [Concomitant]
     Active Substance: COD LIVER OIL
     Indication: ILL-DEFINED DISORDER

REACTIONS (15)
  - Chills [Recovered/Resolved]
  - Back pain [Recovered/Resolved]
  - Peripheral coldness [Recovered/Resolved]
  - Skin discolouration [Recovered/Resolved]
  - Influenza like illness [Recovered/Resolved]
  - Arthralgia [Recovered/Resolved]
  - Discomfort [Recovered/Resolved]
  - Tinnitus [Recovered/Resolved]
  - Paraesthesia [Recovered/Resolved]
  - Pyrexia [Unknown]
  - Headache [Recovered/Resolved]
  - Feeling abnormal [Recovered/Resolved]
  - Malaise [Recovered/Resolved]
  - Pain [Recovered/Resolved]
  - Back pain [Unknown]

NARRATIVE: CASE EVENT DATE: 20210111
